FAERS Safety Report 8159737-3 (Version None)
Quarter: 2012Q1

REPORT INFORMATION
  Report Type: 
  Country: None (occurrence: None)
  Receive Date: 20120223
  Receipt Date: 20110106
  Transmission Date: 20120608
  Serious: Yes (Hospitalization, Other)
  Sender: FDA-Public Use
  Company Number: US-BAYER-201035912NA

PATIENT
  Age: 20 Year
  Sex: Female
  Weight: 68.027 kg

DRUGS (3)
  1. YASMIN [Suspect]
     Indication: PRODUCT USED FOR UNKNOWN INDICATION
     Dosage: UNK
     Dates: start: 20070509, end: 20070702
  2. YAZ [Suspect]
     Indication: PRODUCT USED FOR UNKNOWN INDICATION
     Route: 048
     Dates: start: 20070509, end: 20070702
  3. ORTHO TRI-CYCLEN LO [Concomitant]
     Dosage: UNK
     Dates: start: 20070625

REACTIONS (7)
  - PAIN IN EXTREMITY [None]
  - MUSCLE SPASMS [None]
  - MUSCLE TIGHTNESS [None]
  - DEEP VEIN THROMBOSIS [None]
  - PAIN [None]
  - CEREBROVASCULAR ACCIDENT [None]
  - OEDEMA PERIPHERAL [None]
